FAERS Safety Report 22890487 (Version 2)
Quarter: 2023Q4

REPORT INFORMATION
  Report Type: Report from Study
  Country: US (occurrence: US)
  Receive Date: 20230831
  Receipt Date: 20231010
  Transmission Date: 20240109
  Serious: Yes (Hospitalization, Other)
  Sender: FDA-Public Use
  Company Number: US-ABBVIE-5390161

PATIENT
  Age: 15 Year
  Sex: Female

DRUGS (1)
  1. HUMIRA [Suspect]
     Active Substance: ADALIMUMAB
     Indication: Crohn^s disease
     Dosage: CITRATE FREE, FORM STRENGTH 40 MG?LAST ADMIN DATE-2023
     Route: 058
     Dates: start: 20230608

REACTIONS (10)
  - Posterior reversible encephalopathy syndrome [Recovered/Resolved]
  - Faecal vomiting [Not Recovered/Not Resolved]
  - Gastrointestinal obstruction [Recovering/Resolving]
  - Pain [Unknown]
  - Blood pressure decreased [Recovering/Resolving]
  - Asthenia [Recovering/Resolving]
  - Musculoskeletal chest pain [Recovering/Resolving]
  - Abscess bacterial [Recovering/Resolving]
  - Abscess fungal [Recovering/Resolving]
  - Stress [Recovered/Resolved]

NARRATIVE: CASE EVENT DATE: 20230807
